FAERS Safety Report 4640242-3 (Version None)
Quarter: 2005Q2

REPORT INFORMATION
  Report Type: 
  Country: None (occurrence: None)
  Receive Date: 20050420
  Receipt Date: 20050415
  Transmission Date: 20051028
  Serious: Yes (Death)
  Sender: FDA-Public Use
  Company Number: FR-JNJFOC-20050403663

PATIENT
  Age: 75 Year
  Sex: Female

DRUGS (3)
  1. DURAGESIC-100 [Suspect]
     Route: 062
  2. ANTI-INFLAMMATORY AGENT [Concomitant]
     Route: 065
  3. OGAST [Concomitant]
     Route: 065

REACTIONS (3)
  - CONFUSIONAL STATE [None]
  - SLEEP APNOEA SYNDROME [None]
  - SOMNOLENCE [None]
